FAERS Safety Report 25148118 (Version 2)
Quarter: 2025Q2

REPORT INFORMATION
  Report Type: Report from Study
  Country: US (occurrence: US)
  Receive Date: 20250402
  Receipt Date: 20250407
  Transmission Date: 20250717
  Serious: Yes (Death, Hospitalization)
  Sender: ABBVIE
  Company Number: US-ABBVIE-6205446

PATIENT
  Age: 82 Year
  Sex: Male
  Weight: 71.667 kg

DRUGS (2)
  1. HUMIRA [Suspect]
     Active Substance: ADALIMUMAB
     Indication: Rheumatoid arthritis
     Dosage: FORM STRENGTH: 40 MG, START DATE: AT LEAST  TWO TO THREE YEARS AGO
     Route: 058
     Dates: start: 2022, end: 202312
  2. HUMIRA [Suspect]
     Active Substance: ADALIMUMAB
     Dosage: FORM STRENGTH: 40 MG
     Route: 058
     Dates: start: 202401, end: 20250115

REACTIONS (11)
  - Coronary artery disease [Fatal]
  - Fall [Recovered/Resolved]
  - Weight decreased [Not Recovered/Not Resolved]
  - Urinary tract infection [Not Recovered/Not Resolved]
  - Shoulder fracture [Recovering/Resolving]
  - Traumatic lung injury [Recovered/Resolved]
  - Rib fracture [Recovering/Resolving]
  - Decreased appetite [Not Recovered/Not Resolved]
  - Contusion [Recovered/Resolved]
  - Fall [Recovered/Resolved]
  - Pulmonary oedema [Recovered/Resolved]

NARRATIVE: CASE EVENT DATE: 20241101
